FAERS Safety Report 8540148-3 (Version None)
Quarter: 2012Q3

REPORT INFORMATION
  Report Type: 
  Country: None (occurrence: None)
  Receive Date: 20120713
  Receipt Date: 20120628
  Transmission Date: 20120928
  Serious: Yes (Hospitalization)
  Sender: FDA-Public Use
  Company Number: TCI2010A03537

PATIENT
  Age: 61 Year
  Sex: Male

DRUGS (4)
  1. ACTOS [Suspect]
     Indication: TYPE 2 DIABETES MELLITUS
     Dosage: 15 MG (15 MG, 1 D), PER ORAL
     Route: 048
     Dates: start: 20090223
  2. IRBETAN (IRBESARTAN) [Concomitant]
  3. CALSLOT (MANIDIPINE HYDROCHLORIDE) [Concomitant]
  4. SULFONAMIDES, UREA DERIVATES [Concomitant]

REACTIONS (3)
  - BLOOD CREATININE INCREASED [None]
  - LABORATORY TEST ABNORMAL [None]
  - GASTRIC CANCER [None]
